FAERS Safety Report 8192015-5 (Version None)
Quarter: 2012Q1

REPORT INFORMATION
  Report Type: 
  Country: None (occurrence: None)
  Receive Date: 20120307
  Receipt Date: 20120302
  Transmission Date: 20120608
  Serious: Yes (Death, Hospitalization, Other)
  Sender: FDA-Public Use
  Company Number: PHHY2012FR018444

PATIENT
  Sex: Male

DRUGS (12)
  1. PIPERACILLIN AND TAZOBACTAM [Concomitant]
     Dosage: UNK
     Dates: start: 20111223, end: 20111226
  2. PREDNISONE TAB [Concomitant]
  3. SANDIMMUNE [Suspect]
     Indication: PROPHYLAXIS AGAINST TRANSPLANT REJECTION
     Dosage: UNK UKN, UNK
     Dates: start: 20110701
  4. OXACILLIN [Suspect]
     Dosage: 2 G, TID
     Route: 042
     Dates: start: 20111221, end: 20111231
  5. FLAGYL [Suspect]
     Dosage: UNK
     Dates: start: 20111226, end: 20120125
  6. FOSFOCINE [Concomitant]
     Dosage: UNK
     Dates: start: 20120103, end: 20120125
  7. GENTAMICIN [Concomitant]
     Dosage: UNK
     Dates: start: 20111223, end: 20111226
  8. ROCEPHIN [Concomitant]
     Dosage: UNK
     Dates: start: 20111223, end: 20111226
  9. ASPEGIC 1000 [Concomitant]
  10. ESOMEPRAZOLE SODIUM [Concomitant]
  11. PHOSPHORUS [Concomitant]
  12. OXACILLIN [Suspect]
     Dosage: 2 G, TID
     Route: 042
     Dates: start: 20120103, end: 20120125

REACTIONS (13)
  - MIOSIS [None]
  - PANCYTOPENIA [None]
  - RESPIRATORY DISORDER [None]
  - ENCEPHALOPATHY [None]
  - HYPORESPONSIVE TO STIMULI [None]
  - APHASIA [None]
  - EATING DISORDER [None]
  - MYOCLONUS [None]
  - SOMNOLENCE [None]
  - TREMOR [None]
  - LIVER ABSCESS [None]
  - SPEECH DISORDER [None]
  - PSEUDOBULBAR PALSY [None]
